FAERS Safety Report 9011869 (Version 1)
Quarter: 2013Q1

REPORT INFORMATION
  Report Type: Spontaneous
  Country: US (occurrence: US)
  Receive Date: 20130113
  Receipt Date: 20130113
  Transmission Date: 20140127
  Serious: Yes (Other)
  Sender: FDA-Public Use
  Company Number: US-009507513-0909USA03220

PATIENT
  Age: 16 Year
  Sex: Female
  Weight: 65.77 kg

DRUGS (2)
  1. SINGULAIR [Suspect]
     Indication: MULTIPLE ALLERGIES
     Dosage: ONCE DAILY
     Route: 048
     Dates: start: 20010401, end: 20030628
  2. SINGULAIR [Suspect]
     Indication: ASTHMA

REACTIONS (7)
  - Affective disorder [Unknown]
  - Depression [Unknown]
  - Diarrhoea [Unknown]
  - Gastrointestinal disorder [Unknown]
  - Headache [Unknown]
  - Self-injurious ideation [Unknown]
  - Weight decreased [Unknown]
